FAERS Safety Report 9496895 (Version 1)
Quarter: 2013Q3

REPORT INFORMATION
  Report Type: Spontaneous
  Country: CZ (occurrence: None)
  Receive Date: 20130830
  Receipt Date: 20130830
  Transmission Date: 20140515
  Serious: Yes (Hospitalization)
  Sender: FDA-Public Use
  Company Number: 2013P1018791

PATIENT
  Age: 35 Year
  Sex: Female

DRUGS (3)
  1. GENTAMICIN SULFATE [Suspect]
     Indication: ENDOMETRITIS
  2. CLINDAMYCIN [Suspect]
     Indication: ENDOMETRITIS
  3. CEFOTAXIME [Suspect]
     Indication: ENDOMETRITIS

REACTIONS (7)
  - Infection [None]
  - Rash erythematous [None]
  - Haemorrhage [None]
  - Blister [None]
  - Toxic epidermal necrolysis [None]
  - Pulmonary oedema [None]
  - Pulmonary embolism [None]
